FAERS Safety Report 20072866 (Version 4)
Quarter: 2022Q1

REPORT INFORMATION
  Report Type: Spontaneous
  Country: IE (occurrence: IE)
  Receive Date: 20211116
  Receipt Date: 20220121
  Transmission Date: 20220424
  Serious: Yes (Other)
  Sender: FDA-Public Use
  Company Number: IE-BEH-2021137985

PATIENT
  Age: 25 Year
  Sex: Female

DRUGS (10)
  1. RHOPHYLAC [Suspect]
     Active Substance: HUMAN RHO(D) IMMUNE GLOBULIN
     Indication: Rhesus incompatibility
     Dosage: 300MCG/2ML, TOT, 1 VIAL
     Route: 030
     Dates: start: 20211023, end: 20211023
  2. RHOPHYLAC [Suspect]
     Active Substance: HUMAN RHO(D) IMMUNE GLOBULIN
     Indication: Rhesus incompatibility
     Dosage: 300MCG/2ML, TOT, 1 VIAL
     Route: 030
     Dates: start: 20211023, end: 20211023
  3. RHOPHYLAC [Suspect]
     Active Substance: HUMAN RHO(D) IMMUNE GLOBULIN
     Indication: Rhesus incompatibility
     Dosage: 600MCG/4ML, TOT, 2 VIALS
     Route: 042
     Dates: start: 20211023, end: 20211023
  4. RHOPHYLAC [Suspect]
     Active Substance: HUMAN RHO(D) IMMUNE GLOBULIN
     Indication: Rhesus incompatibility
     Dosage: 600MCG/4ML, TOT, 2 VIALS
     Route: 042
     Dates: start: 20211023, end: 20211023
  5. RHOPHYLAC [Suspect]
     Active Substance: HUMAN RHO(D) IMMUNE GLOBULIN
     Indication: Foetal-maternal haemorrhage
  6. RHOPHYLAC [Suspect]
     Active Substance: HUMAN RHO(D) IMMUNE GLOBULIN
     Indication: Foetal-maternal haemorrhage
  7. TERBUTALINE [Concomitant]
     Active Substance: TERBUTALINE
     Dosage: UNK
     Route: 058
     Dates: start: 20211022
  8. AMOXICILLIN\CLAVULANATE POTASSIUM [Concomitant]
     Active Substance: AMOXICILLIN\CLAVULANATE POTASSIUM
     Indication: Drug therapy
     Dosage: 1.2 GRAM - 3 DOSES
     Dates: start: 20211022
  9. OXYCONTIN [Concomitant]
     Active Substance: OXYCODONE HYDROCHLORIDE
     Dosage: 10 MILLIGRAM
  10. OXYCODONE HYDROCHLORIDE [Concomitant]
     Active Substance: OXYCODONE HYDROCHLORIDE

REACTIONS (5)
  - Alloimmunisation [Unknown]
  - Anti Kell antibody test positive [Unknown]
  - Emotional distress [Recovered/Resolved]
  - Burning sensation [Recovered/Resolved]
  - Chills [Recovered/Resolved]

NARRATIVE: CASE EVENT DATE: 20211001
